FAERS Safety Report 6531262-2 (Version None)
Quarter: 2010Q1

REPORT INFORMATION
  Report Type: 
  Country: None (occurrence: None)
  Receive Date: 20100108
  Receipt Date: 20091222
  Transmission Date: 20100710
  Serious: No
  Sender: FDA-Public Use
  Company Number: US-BAYER-200918119NA

PATIENT
  Age: 58 Year
  Sex: Female
  Weight: 80 kg

DRUGS (1)
  1. MAGNEVIST [Suspect]
     Indication: NUCLEAR MAGNETIC RESONANCE IMAGING BRAIN
     Dosage: AS USED: 15 ML  UNIT DOSE: 15 ML
     Route: 042
     Dates: start: 20090308, end: 20090308

REACTIONS (3)
  - CONTRAST MEDIA REACTION [None]
  - RESPIRATORY DISTRESS [None]
  - WHEEZING [None]
